FAERS Safety Report 23924116 (Version 3)
Quarter: 2024Q2

REPORT INFORMATION
  Report Type: Spontaneous
  Country: US (occurrence: None)
  Receive Date: 20240531
  Receipt Date: 20240613
  Transmission Date: 20240716
  Serious: Yes (Other)
  Sender: FDA-Public Use
  Company Number: US-MDD US Operations-MDD202206-001737

PATIENT
  Age: 78 Year
  Sex: Male
  Weight: 53 kg

DRUGS (19)
  1. APOKYN [Suspect]
     Active Substance: APOMORPHINE HYDROCHLORIDE
     Indication: Parkinson^s disease
     Dosage: (AT THE MOST ONCE PER DAY)
     Route: 058
     Dates: start: 20210701, end: 20231105
  2. APOKYN [Suspect]
     Active Substance: APOMORPHINE HYDROCHLORIDE
     Route: 058
     Dates: start: 20220618
  3. APOKYN [Suspect]
     Active Substance: APOMORPHINE HYDROCHLORIDE
     Dosage: UP TO 3 DOSES
     Dates: start: 20220728
  4. APOKYN [Suspect]
     Active Substance: APOMORPHINE HYDROCHLORIDE
     Route: 058
  5. APOKYN [Suspect]
     Active Substance: APOMORPHINE HYDROCHLORIDE
     Dates: start: 20220616, end: 20220616
  6. APOKYN [Suspect]
     Active Substance: APOMORPHINE HYDROCHLORIDE
     Dosage: SOMETIMES ONCE A DAY, SOMETIMES ONCE IN THREE VARIES AS IT VARIES DAY TO DAY.
  7. APOKYN [Suspect]
     Active Substance: APOMORPHINE HYDROCHLORIDE
     Dosage: ONCE OR TWICE A WEEK TO ONCE OR TWICE TWO WEEKS
     Route: 058
  8. CARBIDOPA\LEVODOPA [Concomitant]
     Active Substance: CARBIDOPA\LEVODOPA
     Indication: Parkinson^s disease
     Dosage: NOT PROVIDED
  9. CARBIDOPA\LEVODOPA [Concomitant]
     Active Substance: CARBIDOPA\LEVODOPA
     Dosage: EVERY TWO AND HALF HOURS DURING DAYTIME UP TO 08:00 PM ET
  10. CARBIDOPA\LEVODOPA [Concomitant]
     Active Substance: CARBIDOPA\LEVODOPA
     Dosage: EVERY TWO HOURS
  11. SELEGILINE [Concomitant]
     Active Substance: SELEGILINE
  12. SELEGILINE [Concomitant]
     Active Substance: SELEGILINE
     Dosage: NOT PROVIDED
  13. Vivadapa [Concomitant]
     Dosage: NOT PROVIDED
  14. NEUPRO [Concomitant]
     Active Substance: ROTIGOTINE
     Dosage: NOT PROVIDED
  15. CARBIDOPA [Concomitant]
     Active Substance: CARBIDOPA
     Dosage: 25/100
  16. PARCOPA [Concomitant]
     Active Substance: CARBIDOPA\LEVODOPA
     Dosage: NOT REPORTED
  17. CITRUCEL [Concomitant]
     Active Substance: METHYLCELLULOSE (4000 CPS)\METHYLCELLULOSE (4000 MPA.S)
     Indication: Abdominal discomfort
     Dosage: NOT PROVIDED
  18. CITRUCEL [Concomitant]
     Active Substance: METHYLCELLULOSE (4000 CPS)\METHYLCELLULOSE (4000 MPA.S)
     Dosage: EVERY TWO AND HALF HOURS DURING DAYTIME UP TO 08:00 PM ET
  19. SINEMET [Concomitant]
     Active Substance: CARBIDOPA\LEVODOPA
     Dosage: NOT PROVIDED

REACTIONS (13)
  - Fall [Recovering/Resolving]
  - Head injury [Recovering/Resolving]
  - Hypokinesia [Unknown]
  - Feeling abnormal [Unknown]
  - Musculoskeletal stiffness [Unknown]
  - Confusional state [Recovering/Resolving]
  - Dyskinesia [Unknown]
  - Fall [Unknown]
  - Injection site haemorrhage [Unknown]
  - Muscle rigidity [Unknown]
  - Therapeutic product effect decreased [Unknown]
  - Drug ineffective [Unknown]
  - Inappropriate schedule of product administration [Unknown]

NARRATIVE: CASE EVENT DATE: 20220616
